FAERS Safety Report 7378122-5 (Version None)
Quarter: 2011Q1

REPORT INFORMATION
  Report Type: 
  Country: None (occurrence: None)
  Receive Date: 20110328
  Receipt Date: 20110318
  Transmission Date: 20110831
  Serious: Yes (Disabling, Other)
  Sender: FDA-Public Use
  Company Number: US-US-EMD SERONO, INC.-7003179

PATIENT
  Sex: Male

DRUGS (5)
  1. ANTIDEPRESSANTS [Concomitant]
     Indication: DEPRESSION
  2. LEXAPRO [Concomitant]
     Indication: DEPRESSION
     Dates: end: 20100901
  3. REBIF [Suspect]
     Indication: MULTIPLE SCLEROSIS
     Route: 058
     Dates: start: 20090107, end: 20100401
  4. REBIF [Suspect]
     Route: 058
     Dates: start: 20100528, end: 20100101
  5. REBIF [Suspect]
     Route: 058
     Dates: start: 20100101

REACTIONS (11)
  - SUICIDAL IDEATION [None]
  - ANXIETY [None]
  - STRESS [None]
  - DYSPNOEA [None]
  - INFLUENZA LIKE ILLNESS [None]
  - INJECTION SITE PAIN [None]
  - DRUG INEFFECTIVE [None]
  - FEELING OF BODY TEMPERATURE CHANGE [None]
  - FATIGUE [None]
  - DEPRESSION [None]
  - BLINDNESS UNILATERAL [None]
